FAERS Safety Report 10095315 (Version 1)
Quarter: 2014Q2

REPORT INFORMATION
  Report Type: Spontaneous
  Country: US (occurrence: US)
  Receive Date: 20140422
  Receipt Date: 20140422
  Transmission Date: 20141212
  Serious: Yes (Hospitalization, Other)
  Sender: FDA-Public Use
  Company Number: US-B.I. PHARMACEUTICALS,INC./RIDGEFIELD-2014-BI-17554BP

PATIENT
  Sex: Female
  Weight: 82 kg

DRUGS (1)
  1. SPIRIVA [Suspect]
     Indication: PNEUMONIA
     Dosage: 18 MCG
     Route: 055
     Dates: start: 2007

REACTIONS (5)
  - Vulval cancer [Not Recovered/Not Resolved]
  - Neoplasm [Recovered/Resolved]
  - Malaise [Recovered/Resolved]
  - Renal failure [Recovered/Resolved]
  - Off label use [Unknown]
